FAERS Safety Report 8545746-9 (Version None)
Quarter: 2012Q3

REPORT INFORMATION
  Report Type: 
  Country: None (occurrence: None)
  Receive Date: 20120727
  Receipt Date: 20120717
  Transmission Date: 20120928
  Serious: Yes (Death)
  Sender: FDA-Public Use
  Company Number: US-MYLANLABS-2010S1010260

PATIENT
  Age: 47 Year
  Sex: Male
  Weight: 98.88 kg

DRUGS (6)
  1. XANAX [Concomitant]
  2. AMITRIPTYLINE HYDROCHLORIDE [Suspect]
     Indication: ANXIETY
     Route: 048
     Dates: start: 20080601
  3. LORTAB [Suspect]
     Indication: PAIN
  4. FENTANYL-100 [Suspect]
     Indication: PAIN
     Dosage: CHANGE Q3D
     Route: 062
     Dates: end: 20080609
  5. RANITIDINE [Concomitant]
  6. IBUPROFEN [Concomitant]

REACTIONS (3)
  - POTENTIATING DRUG INTERACTION [None]
  - TOXICITY TO VARIOUS AGENTS [None]
  - OVERDOSE [None]
